FAERS Safety Report 19824191 (Version 2)
Quarter: 2021Q3

REPORT INFORMATION
  Report Type: Spontaneous
  Country: DK (occurrence: DK)
  Receive Date: 20210913
  Receipt Date: 20210921
  Transmission Date: 20211014
  Serious: Yes (Hospitalization)
  Sender: FDA-Public Use
  Company Number: DK-MYLANLABS-2021M1061346

PATIENT
  Sex: Male

DRUGS (1)
  1. SERTRALINE [Suspect]
     Active Substance: SERTRALINE HYDROCHLORIDE
     Indication: DEPRESSION
     Dosage: UNK
     Route: 065
     Dates: start: 2017

REACTIONS (6)
  - Dry mouth [Unknown]
  - Restlessness [Unknown]
  - Insomnia [Unknown]
  - Anxiety [Unknown]
  - Discomfort [Unknown]
  - Obsessive thoughts [Unknown]
